FAERS Safety Report 21404739 (Version 1)
Quarter: 2022Q3

REPORT INFORMATION
  Report Type: Spontaneous
  Country: US (occurrence: None)
  Receive Date: 20220930
  Receipt Date: 20220930
  Transmission Date: 20221026
  Serious: No
  Sender: FDA-Public Use
  Company Number: None

PATIENT
  Sex: Female

DRUGS (1)
  1. RASUVO [Suspect]
     Active Substance: METHOTREXATE SODIUM
     Indication: Scleroderma
     Dosage: 25 MG EVERY WEEK SC?
     Route: 058
     Dates: start: 202201

REACTIONS (3)
  - Syringe issue [None]
  - Device defective [None]
  - Product dose omission issue [None]
